FAERS Safety Report 4474213-7 (Version None)
Quarter: 2004Q4

REPORT INFORMATION
  Report Type: 
  Country: None (occurrence: None)
  Receive Date: 20041008
  Receipt Date: 20040928
  Transmission Date: 20050328
  Serious: Yes (Other)
  Sender: FDA-Public Use
  Company Number: HQWYE434229SEP04

PATIENT
  Sex: Female

DRUGS (5)
  1. PREMPRO [Suspect]
     Indication: HORMONE REPLACEMENT THERAPY
     Dosage: HIGHER DOSE, NOT SPECIFIED, ORAL; 0.45MG/1.5MG DAILY, ORAL
     Route: 048
     Dates: start: 19990101, end: 20040301
  2. PREMPRO [Suspect]
     Indication: HORMONE REPLACEMENT THERAPY
     Dosage: HIGHER DOSE, NOT SPECIFIED, ORAL; 0.45MG/1.5MG DAILY, ORAL
     Route: 048
     Dates: start: 20040301, end: 20040901
  3. COUMADIN [Concomitant]
  4. RANITIDINE [Concomitant]
  5. ACCUPRIL [Concomitant]

REACTIONS (5)
  - ALOPECIA [None]
  - CARCINOMA [None]
  - HYPOTRICHOSIS [None]
  - PROTEIN TOTAL ABNORMAL [None]
  - WEIGHT INCREASED [None]
